FAERS Safety Report 19385593 (Version 1)
Quarter: 2021Q2

REPORT INFORMATION
  Report Type: Spontaneous
  Country: US (occurrence: US)
  Receive Date: 20210605
  Receipt Date: 20210605
  Transmission Date: 20210717
  Serious: Yes (Other)
  Sender: FDA-Public Use
  Company Number: None

PATIENT
  Age: 56 Year
  Sex: Male
  Weight: 73.35 kg

DRUGS (8)
  1. OCTREOTIDE ACET MDV/INJ GENERIC NAME: OCTREOTIDE ACETATE [Suspect]
     Active Substance: OCTREOTIDE ACETATE
     Indication: PANCREATIC CARCINOMA
     Dosage: ?          QUANTITY:1 INJECTION(S);OTHER ROUTE:INJECTION INTO STOMACH?
     Dates: start: 20210601, end: 20210604
  2. IBUPROFEN. [Concomitant]
     Active Substance: IBUPROFEN
  3. METFORMIN [Concomitant]
     Active Substance: METFORMIN HYDROCHLORIDE
  4. ATORVASTATIN [Concomitant]
     Active Substance: ATORVASTATIN
  5. MULTI VITAMIN [Concomitant]
     Active Substance: VITAMINS
  6. PANCRELIPASE. [Concomitant]
     Active Substance: PANCRELIPASE
  7. OCTREOTIDE ACET MDV/INJ GENERIC NAME: OCTREOTIDE ACETATE [Suspect]
     Active Substance: OCTREOTIDE ACETATE
     Indication: HEPATIC CANCER
     Dosage: ?          QUANTITY:1 INJECTION(S);OTHER ROUTE:INJECTION INTO STOMACH?
     Dates: start: 20210601, end: 20210604
  8. OMEPRAZOLE. [Concomitant]
     Active Substance: OMEPRAZOLE

REACTIONS (7)
  - Diarrhoea [None]
  - Vomiting [None]
  - Flatulence [None]
  - Abdominal pain upper [None]
  - Abdominal distension [None]
  - Eructation [None]
  - Gastrooesophageal reflux disease [None]

NARRATIVE: CASE EVENT DATE: 20210603
